FAERS Safety Report 6913182-4 (Version None)
Quarter: 2010Q3

REPORT INFORMATION
  Report Type: 
  Country: None (occurrence: None)
  Receive Date: 20100806
  Receipt Date: 20091208
  Transmission Date: 20110219
  Serious: Yes (Other)
  Sender: FDA-Public Use
  Company Number: US-PFIZER INC-2009172016

PATIENT
  Sex: Female
  Weight: 78 kg

DRUGS (8)
  1. DILANTIN [Suspect]
     Indication: CONVULSION
     Dosage: UNK
     Dates: start: 20000801, end: 20001101
  2. DILANTIN [Suspect]
     Dosage: 100 MG, 2X/DAY
     Route: 048
     Dates: start: 20001109, end: 20001201
  3. DILANTIN [Suspect]
     Dosage: 200 MG, 2X/DAY
     Route: 048
     Dates: start: 20001205, end: 20010301
  4. DILANTIN [Suspect]
     Dosage: UNK
     Route: 048
     Dates: start: 20010329, end: 20010101
  5. DILANTIN [Suspect]
     Dosage: UNK
     Route: 048
     Dates: start: 20010101, end: 20030506
  6. DILANTIN [Suspect]
     Dosage: UNK
     Route: 048
     Dates: start: 20030501, end: 20030101
  7. TOPAMAX [Concomitant]
  8. PROMETHAZINE [Concomitant]

REACTIONS (1)
  - STEVENS-JOHNSON SYNDROME [None]
